FAERS Safety Report 5356115-7 (Version None)
Quarter: 2007Q2

REPORT INFORMATION
  Report Type: 
  Country: None (occurrence: None)
  Receive Date: 20070613
  Receipt Date: 20070601
  Transmission Date: 20071010
  Serious: Yes (Other)
  Sender: FDA-Public Use
  Company Number: FR-PFIZER INC-2006127510

PATIENT
  Sex: Female
  Weight: 60 kg

DRUGS (4)
  1. NEURONTIN [Suspect]
     Indication: NEURALGIA
     Dosage: DAILY DOSE:300MG
     Route: 048
     Dates: start: 20031108, end: 20060819
  2. SOLU-MEDROL [Suspect]
     Indication: MULTIPLE SCLEROSIS
     Dosage: DAILY DOSE:1000MG
     Dates: start: 20060531, end: 20070112
  3. INTERFERON BETA-1A [Suspect]
     Indication: MULTIPLE SCLEROSIS
     Dosage: TEXT:50 MICROG
     Route: 030
     Dates: start: 20030804, end: 20060814
  4. CITALOPRAM HYDROBROMIDE [Concomitant]

REACTIONS (5)
  - ASTHENIA [None]
  - AUTOIMMUNE HEPATITIS [None]
  - CYST [None]
  - HEPATITIS [None]
  - JAUNDICE [None]
